FAERS Safety Report 22278533 (Version 1)
Quarter: 2023Q2

REPORT INFORMATION
  Report Type: Spontaneous
  Country: CA (occurrence: CA)
  Receive Date: 20230503
  Receipt Date: 20230503
  Transmission Date: 20230721
  Serious: Yes (Other)
  Sender: FDA-Public Use
  Company Number: CA-STERISCIENCE B.V.-2023-ST-001226

PATIENT

DRUGS (8)
  1. PIPERACILLIN SODIUM\TAZOBACTAM SODIUM [Suspect]
     Active Substance: PIPERACILLIN SODIUM\TAZOBACTAM SODIUM
     Indication: Product used for unknown indication
     Dosage: THE PATIENT^S MOTHER DOSE WAS UNKNOWN
     Route: 064
  2. MIDAZOLAM [Suspect]
     Active Substance: MIDAZOLAM
     Indication: Product used for unknown indication
     Dosage: THE PATIENT^S MOTHER DOSE WAS 10 MG, QH
     Route: 064
  3. ROCURONIUM [Suspect]
     Active Substance: ROCURONIUM BROMIDE
     Indication: Product used for unknown indication
     Dosage: THE PATIENT^S MOTHER DOSE WAS 20 UG/KG AND 50 MG
     Route: 064
  4. NOREPINEPHRINE [Suspect]
     Active Substance: NOREPINEPHRINE
     Indication: Product used for unknown indication
     Dosage: THE PATIENT^S MOTHER DOSE WAS 0.02 UG/KG
     Route: 064
  5. VASOPRESSIN [Suspect]
     Active Substance: VASOPRESSIN
     Indication: Product used for unknown indication
     Dosage: THE PATIENT^S MOTHER DOSE WAS 0.04 IU
     Route: 064
  6. NITRIC OXIDE [Suspect]
     Active Substance: NITRIC OXIDE
     Indication: Product used for unknown indication
     Dosage: THE PATIENT^S MOTHER DOSE WAS INHALED NITRIC OXIDE AT 40 PPM
     Route: 064
  7. PROPOFOL [Suspect]
     Active Substance: PROPOFOL
     Indication: Product used for unknown indication
     Dosage: THE PATIENT MOTHER DOSE WAS 60 UG/KG
     Route: 064
  8. FENTANYL [Suspect]
     Active Substance: FENTANYL
     Indication: Product used for unknown indication
     Dosage: THE PATIENT^S MOTHER DOSE WAS 250 UG, QH
     Route: 064

REACTIONS (2)
  - Premature baby [Unknown]
  - Foetal exposure during pregnancy [Unknown]
